FAERS Safety Report 8044186-9 (Version None)
Quarter: 2012Q1

REPORT INFORMATION
  Report Type: 
  Country: None (occurrence: None)
  Receive Date: 20120113
  Receipt Date: 20120105
  Transmission Date: 20120608
  Serious: No
  Sender: FDA-Public Use
  Company Number: US-BAYER-2011-052598

PATIENT
  Age: 48 Year
  Sex: Female

DRUGS (9)
  1. SINGULAIR [Concomitant]
  2. AMLODIPINE [Concomitant]
  3. XANAX [Concomitant]
  4. MINOCYCLINE HCL [Concomitant]
  5. EXTAVIA [Suspect]
     Indication: MULTIPLE SCLEROSIS
     Dosage: 250 ?G, UNK
     Route: 058
     Dates: start: 20100919
  6. ZANTAC [Concomitant]
  7. SPIRIVA [Concomitant]
  8. HYDROCHLOROTHIAZIDE [Concomitant]
  9. VITAMIN TAB [Concomitant]

REACTIONS (6)
  - INJECTION SITE PAIN [None]
  - APHASIA [None]
  - INJECTION SITE ERYTHEMA [None]
  - TREMOR [None]
  - INJECTION SITE MASS [None]
  - CHILLS [None]
